FAERS Safety Report 9564413 (Version 5)
Quarter: 2014Q1

REPORT INFORMATION
  Report Type: Spontaneous
  Country: US (occurrence: US)
  Receive Date: 20130930
  Receipt Date: 20140321
  Transmission Date: 20141002
  Serious: Yes (Hospitalization)
  Sender: FDA-Public Use
  Company Number: US-BIOGENIDEC-2013BI092366

PATIENT
  Sex: Female

DRUGS (3)
  1. TYSABRI [Suspect]
     Indication: MULTIPLE SCLEROSIS
     Route: 042
     Dates: start: 20121106, end: 20140228
  2. BACLOFEN [Concomitant]
  3. KEPPRA [Concomitant]

REACTIONS (6)
  - Multiple sclerosis relapse [Unknown]
  - Convulsion [Unknown]
  - Neck pain [Unknown]
  - Tachycardia [Unknown]
  - Sleep apnoea syndrome [Unknown]
  - Status migrainosus [Unknown]
